FAERS Safety Report 8962148 (Version 3)
Quarter: 2013Q1

REPORT INFORMATION
  Report Type: Spontaneous
  Country: US (occurrence: US)
  Receive Date: 20121212
  Receipt Date: 20130125
  Transmission Date: 20140127
  Serious: Yes (Death)
  Sender: FDA-Public Use
  Company Number: US-PFIZER INC-2012311550

PATIENT
  Age: 78 Year
  Sex: Male

DRUGS (13)
  1. SUTENT [Suspect]
     Indication: RENAL CANCER
     Dosage: UNK
     Route: 048
     Dates: start: 20120111, end: 20120530
  2. PRILOSEC [Concomitant]
  3. ACTOS [Concomitant]
  4. GLIPIZIDE [Concomitant]
  5. SPIRIVA [Concomitant]
  6. SIMVASTATIN [Concomitant]
  7. COLACE [Concomitant]
  8. IRON [Concomitant]
  9. FINASTERIDE [Concomitant]
  10. TAMSULOSIN [Concomitant]
  11. TYLENOL [Concomitant]
  12. ADVAIR [Concomitant]
  13. ZOFRAN [Concomitant]

REACTIONS (2)
  - Disease progression [Fatal]
  - Renal cancer [Fatal]
